FAERS Safety Report 5576558-6 (Version None)
Quarter: 2007Q4

REPORT INFORMATION
  Report Type: 
  Country: None (occurrence: None)
  Receive Date: 20071228
  Receipt Date: 20071119
  Transmission Date: 20080405
  Serious: No
  Sender: FDA-Public Use
  Company Number: A0676147A

PATIENT
  Age: 75 Year
  Sex: Male
  Weight: 98.2 kg

DRUGS (2)
  1. FLOVENT [Suspect]
     Indication: ASTHMA
     Dosage: 2PUFF TWICE PER DAY
     Route: 055
     Dates: start: 20070806, end: 20070822
  2. PLAVIX [Concomitant]

REACTIONS (5)
  - ABDOMINAL PAIN [None]
  - CHEST DISCOMFORT [None]
  - CONSTIPATION [None]
  - DYSPHAGIA [None]
  - GASTROINTESTINAL PAIN [None]
